FAERS Safety Report 9029927 (Version 1)
Quarter: 2013Q1

REPORT INFORMATION
  Report Type: Spontaneous
  Country: US (occurrence: US)
  Receive Date: 20130124
  Receipt Date: 20130124
  Transmission Date: 20140127
  Serious: Yes (Hospitalization, Other)
  Sender: FDA-Public Use
  Company Number: US-B.I. PHARMACEUTICALS,INC./RIDGEFIELD-2013-BI-01609GD

PATIENT
  Age: 71 Year
  Sex: Female

DRUGS (17)
  1. PRADAXA [Suspect]
     Indication: ATRIAL FIBRILLATION
     Dosage: 300 MG
     Route: 048
  2. IBUPROFEN [Suspect]
     Dosage: 600 MG
  3. MORPHINE [Suspect]
     Dosage: 2 MG
  4. LONARID [Suspect]
  5. MULTAQ [Suspect]
     Dosage: 800 MG
  6. BYSTOLIC [Suspect]
     Dosage: 5 MG
  7. NORVASC [Suspect]
     Dosage: 2.5 MG
  8. BENICAR HCT [Suspect]
     Dosage: OLEMSARTAN-HCTZ 40/20 MG
  9. ATIVAN [Suspect]
     Dosage: 0.5 MG
  10. PRILOSEC [Suspect]
     Dosage: 20 MG
  11. COLACE [Suspect]
     Dosage: 200 MG
  12. ERGOCALCIFEROL [Suspect]
     Dosage: 1666.6667 U
  13. CALCIUM [Suspect]
  14. MULTIVITAMINS [Suspect]
  15. HEPARIN [Suspect]
     Indication: PROPHYLAXIS
     Dosage: 5000 U
     Route: 058
  16. KETOROLAC [Suspect]
     Dosage: 30 U
  17. ONDANSETRON [Suspect]

REACTIONS (10)
  - Endometrial adenocarcinoma [Unknown]
  - Postmenopausal haemorrhage [Unknown]
  - Ecchymosis [Recovered/Resolved]
  - Anaemia postoperative [Unknown]
  - Procedural hypotension [Unknown]
  - Post procedural oedema [Unknown]
  - Procedural pain [Unknown]
  - Incision site haemorrhage [Recovered/Resolved]
  - Vaginal haemorrhage [Unknown]
  - Abdominal distension [Recovered/Resolved]
